FAERS Safety Report 9822468 (Version 1)
Quarter: 2014Q1

REPORT INFORMATION
  Report Type: Spontaneous
  Country: US (occurrence: US)
  Receive Date: 20140116
  Receipt Date: 20140116
  Transmission Date: 20141002
  Serious: No
  Sender: FDA-Public Use
  Company Number: US-ORAPHARMA-QUINORA-2012-041

PATIENT
  Sex: 0

DRUGS (1)
  1. ARESTIN [Suspect]
     Indication: PERIODONTITIS
     Dosage: UNK, ONE TIME DOSE
     Route: 061
     Dates: start: 20120725, end: 20120725

REACTIONS (2)
  - Sunburn [Recovering/Resolving]
  - Sinusitis [Not Recovered/Not Resolved]
